FAERS Safety Report 21171400 (Version 1)
Quarter: 2022Q3

REPORT INFORMATION
  Report Type: Spontaneous
  Country: US (occurrence: US)
  Receive Date: 20220804
  Receipt Date: 20220804
  Transmission Date: 20221027
  Serious: No
  Sender: FDA-Public Use
  Company Number: US-PFIZER INC-202201026284

PATIENT
  Sex: Female

DRUGS (1)
  1. PAXLOVID [Suspect]
     Active Substance: NIRMATRELVIR\RITONAVIR
     Indication: COVID-19 treatment
     Dosage: UNK

REACTIONS (7)
  - Taste disorder [Unknown]
  - Disturbance in attention [Unknown]
  - Insomnia [Unknown]
  - Migraine [Recovering/Resolving]
  - COVID-19 [Unknown]
  - Disease recurrence [Unknown]
  - Intentional dose omission [Unknown]
